FAERS Safety Report 22789669 (Version 4)
Quarter: 2024Q1

REPORT INFORMATION
  Report Type: Spontaneous
  Country: US (occurrence: US)
  Receive Date: 20230804
  Receipt Date: 20240131
  Transmission Date: 20240410
  Serious: Yes (Other)
  Sender: FDA-Public Use
  Company Number: US-PFIZER INC-PV202300133513

PATIENT
  Age: 78 Year
  Sex: Female
  Weight: 77.098 kg

DRUGS (3)
  1. XELJANZ [Suspect]
     Active Substance: TOFACITINIB CITRATE
     Indication: Gastrointestinal pain
     Dosage: 5 MG, 2X/DAY
     Route: 048
     Dates: start: 202308
  2. XELJANZ [Suspect]
     Active Substance: TOFACITINIB CITRATE
     Indication: Diarrhoea
  3. COLESTIPOL HYDROCHLORIDE [Concomitant]
     Active Substance: COLESTIPOL HYDROCHLORIDE
     Dosage: 5 G

REACTIONS (6)
  - Throat cancer [Unknown]
  - Laser therapy [Unknown]
  - Speech disorder [Unknown]
  - Eye disorder [Unknown]
  - Off label use [Unknown]
  - Drug effective for unapproved indication [Unknown]

NARRATIVE: CASE EVENT DATE: 20230801
